FAERS Safety Report 5602234-7 (Version None)
Quarter: 2008Q1

REPORT INFORMATION
  Report Type: 
  Country: None (occurrence: None)
  Receive Date: 20080125
  Receipt Date: 20080114
  Transmission Date: 20080703
  Serious: Yes (Other)
  Sender: FDA-Public Use
  Company Number: PHFR2007GB03717

PATIENT
  Age: 79 Year

DRUGS (6)
  1. DIOVAN [Suspect]
     Indication: HYPERTENSION
     Dosage: 40 MG, QD
     Route: 048
     Dates: start: 20070705
  2. ATENOLOL [Concomitant]
     Indication: HYPERTENSION
     Dosage: 50MG / DAY
     Route: 048
  3. FUROSEMIDE [Concomitant]
     Indication: OEDEMA PERIPHERAL
     Dosage: 20MG / DAY
     Route: 048
  4. SIMVASTATIN [Concomitant]
     Indication: BLOOD CHOLESTEROL INCREASED
     Dosage: 20MG / DAY
     Route: 048
  5. ASPIRIN [Concomitant]
     Indication: ANTICOAGULANT THERAPY
     Dosage: 75MG / DAY
     Route: 048
  6. PARACETAMOL [Concomitant]
     Dosage: 4.0G / DAY
     Route: 048

REACTIONS (3)
  - DYSPHAGIA [None]
  - MOTOR NEURONE DISEASE [None]
  - SPEECH DISORDER [None]
